FAERS Safety Report 7305209-5 (Version None)
Quarter: 2011Q1

REPORT INFORMATION
  Report Type: 
  Country: None (occurrence: None)
  Receive Date: 20110222
  Receipt Date: 20110215
  Transmission Date: 20110831
  Serious: Yes (Death)
  Sender: FDA-Public Use
  Company Number: US-PFIZER INC-2010175767

PATIENT
  Sex: Female

DRUGS (4)
  1. FLUOROURACIL [Concomitant]
     Dosage: 2830 MG, UNK
     Route: 042
     Dates: start: 20100419, end: 20101108
  2. FLUOROURACIL [Concomitant]
     Indication: BILE DUCT CANCER
     Dosage: 310 MG, BOLUS
     Route: 040
     Dates: start: 20100419, end: 20101108
  3. LEUCOVORIN [Concomitant]
     Indication: BILE DUCT CANCER
     Dosage: 200 MG, UNK
     Route: 042
     Dates: start: 20100419, end: 20101108
  4. CAMPTOSAR [Suspect]
     Indication: GALLBLADDER CANCER
     Dosage: 180 MG/M2, EVERY 3 WEEKS
     Route: 042
     Dates: start: 20090910, end: 20100920

REACTIONS (1)
  - DEATH [None]
